FAERS Safety Report 9789807 (Version 1)
Quarter: 2013Q4

REPORT INFORMATION
  Report Type: Spontaneous
  Country: US (occurrence: None)
  Receive Date: 20131230
  Receipt Date: 20131230
  Transmission Date: 20140711
  Serious: Yes (Death)
  Sender: FDA-Public Use
  Company Number: None

PATIENT
  Age: 46 Year
  Sex: Male
  Weight: 121.56 kg

DRUGS (1)
  1. CLORAZIL [Suspect]
     Indication: MENTAL DISORDER
     Dosage: 5 ONCE DAILY
     Route: 048

REACTIONS (3)
  - Unresponsive to stimuli [None]
  - Cyanosis [None]
  - Skin discolouration [None]
